FAERS Safety Report 11445181 (Version 2)
Quarter: 2015Q3

REPORT INFORMATION
  Report Type: Spontaneous
  Country: US (occurrence: US)
  Receive Date: 20150902
  Receipt Date: 20150904
  Transmission Date: 20151125
  Serious: No
  Sender: FDA-Public Use
  Company Number: CHPA2015US010228

PATIENT
  Age: 73 Year
  Sex: Male

DRUGS (5)
  1. VOLTAREN [Suspect]
     Active Substance: DICLOFENAC SODIUM
     Indication: SCAB
  2. VOLTAREN [Suspect]
     Active Substance: DICLOFENAC SODIUM
     Indication: PERIPHERAL SWELLING
     Dosage: 2 G, 4 OR 5 TIMES
     Route: 061
     Dates: start: 201502, end: 20150830
  3. VOLTAREN [Suspect]
     Active Substance: DICLOFENAC SODIUM
     Indication: PAIN
     Dosage: LESS THAN A HALF OF CARD
     Route: 061
     Dates: start: 2015
  4. VOLTAREN [Suspect]
     Active Substance: DICLOFENAC SODIUM
     Indication: APPLICATION SITE PAIN
  5. VOLTAREN [Suspect]
     Active Substance: DICLOFENAC SODIUM
     Indication: WOUND

REACTIONS (13)
  - Inappropriate schedule of drug administration [Unknown]
  - Skin abrasion [Recovering/Resolving]
  - Application site pain [Recovering/Resolving]
  - Diarrhoea [Recovered/Resolved]
  - Drug administered at inappropriate site [Unknown]
  - Wrong technique in product usage process [Unknown]
  - Therapeutic response unexpected [Unknown]
  - Product use issue [Unknown]
  - Fall [Recovering/Resolving]
  - Wound [Recovering/Resolving]
  - Pain [Recovering/Resolving]
  - Scab [Unknown]
  - Incorrect dose administered [Unknown]

NARRATIVE: CASE EVENT DATE: 2015
